FAERS Safety Report 10991233 (Version 4)
Quarter: 2015Q2

REPORT INFORMATION
  Report Type: Spontaneous
  Country: US (occurrence: US)
  Receive Date: 20150406
  Receipt Date: 20150608
  Transmission Date: 20150821
  Serious: No
  Sender: FDA-Public Use
  Company Number: US-BAYER-2015-115164

PATIENT
  Age: 48 Year
  Sex: Female

DRUGS (1)
  1. MIRENA [Suspect]
     Active Substance: LEVONORGESTREL
     Dosage: 20 MCG/24HR, CONT
     Route: 015
     Dates: start: 201308, end: 201312

REACTIONS (5)
  - Menorrhagia [Unknown]
  - Anorgasmia [None]
  - Dyspareunia [None]
  - Pelvic discomfort [Unknown]
  - Allergy to metals [Unknown]
